FAERS Safety Report 6189399-6 (Version None)
Quarter: 2009Q2

REPORT INFORMATION
  Report Type: 
  Country: None (occurrence: None)
  Receive Date: 20090512
  Receipt Date: 20090505
  Transmission Date: 20091009
  Serious: Yes (Life-Threatening)
  Sender: FDA-Public Use
  Company Number: 2009SP009806

PATIENT

DRUGS (2)
  1. TEMODAL [Suspect]
     Indication: ANAPLASTIC ASTROCYTOMA
     Dosage: 110 MG/M2; PO
     Route: 048
     Dates: start: 20081118
  2. TEMODAL [Suspect]
     Indication: GLIOBLASTOMA
     Dosage: 110 MG/M2; PO
     Route: 048
     Dates: start: 20081118

REACTIONS (2)
  - GRAND MAL CONVULSION [None]
  - RESPIRATORY FAILURE [None]
